FAERS Safety Report 11336229 (Version 1)
Quarter: 2015Q3

REPORT INFORMATION
  Report Type: Spontaneous
  Country: JP (occurrence: JP)
  Receive Date: 20150804
  Receipt Date: 20150804
  Transmission Date: 20151125
  Serious: Yes (Hospitalization)
  Sender: FDA-Public Use
  Company Number: JP-PFIZER INC-2015255468

PATIENT
  Age: 66 Year
  Sex: Female
  Weight: 45 kg

DRUGS (33)
  1. CAMPTO [Suspect]
     Active Substance: IRINOTECAN
     Dosage: 200 MG, 1X/DAY (144.6 MG/M2)
     Route: 041
     Dates: start: 20150304, end: 20150304
  2. ELPLAT [Suspect]
     Active Substance: OXALIPLATIN
     Dosage: 117 MG, 1X/DAY (84.6 MG/M2)
     Route: 041
     Dates: start: 20141204, end: 20141204
  3. ELPLAT [Suspect]
     Active Substance: OXALIPLATIN
     Dosage: 117 MG, 1X/DAY (84.6 MG/M2)
     Route: 041
     Dates: start: 20141219, end: 20141219
  4. LEVOFOLINATE [Suspect]
     Active Substance: LEVOLEUCOVORIN CALCIUM
     Dosage: 275.8 MG, 1X/DAY
     Route: 041
     Dates: start: 20150401, end: 20150401
  5. 5-FU [Concomitant]
     Active Substance: FLUOROURACIL
     Indication: PANCREATIC CARCINOMA
     Dosage: 3300 MG/BODY (2386.1 MG/M2) D1-2
     Route: 041
     Dates: start: 20141029, end: 20141029
  6. CAMPTO [Suspect]
     Active Substance: IRINOTECAN
     Dosage: 200 MG, 1X/DAY (144.6 MG/M2)
     Route: 041
     Dates: start: 20150218, end: 20150218
  7. ELPLAT [Suspect]
     Active Substance: OXALIPLATIN
     Indication: PANCREATIC CARCINOMA
     Dosage: 117 MG, 1X/DAY (84.6 MG/M2)
     Route: 041
     Dates: start: 20141029, end: 20141029
  8. ELPLAT [Suspect]
     Active Substance: OXALIPLATIN
     Dosage: 117.2 MG, 1X/DAY (84.7 MG/M2)
     Route: 041
     Dates: start: 20150304, end: 20150304
  9. LEVOFOLINATE [Suspect]
     Active Substance: LEVOLEUCOVORIN CALCIUM
     Dosage: 275.8 MG, 1X/DAY
     Route: 041
     Dates: start: 20141219, end: 20141219
  10. LEVOFOLINATE [Suspect]
     Active Substance: LEVOLEUCOVORIN CALCIUM
     Dosage: 275.8 MG, 1X/DAY
     Route: 041
     Dates: start: 20150415, end: 20150415
  11. CAMPTO [Suspect]
     Active Substance: IRINOTECAN
     Dosage: 200 MG, 1X/DAY (144.6 MG/M2)
     Route: 041
     Dates: start: 20141219, end: 20141219
  12. CAMPTO [Suspect]
     Active Substance: IRINOTECAN
     Dosage: 200 MG, 1X/DAY (144.6 MG/M2)
     Route: 041
     Dates: start: 20150128, end: 20150128
  13. CAMPTO [Suspect]
     Active Substance: IRINOTECAN
     Dosage: 200 MG, 1X/DAY (144.6 MG/M2)
     Route: 041
     Dates: start: 20150318, end: 20150318
  14. ELPLAT [Suspect]
     Active Substance: OXALIPLATIN
     Dosage: 117.2 MG, 1X/DAY (84.7 MG/M2)
     Route: 041
     Dates: start: 20150318, end: 20150318
  15. LEVOFOLINATE [Suspect]
     Active Substance: LEVOLEUCOVORIN CALCIUM
     Dosage: 275.8 MG, 1X/DAY
     Route: 041
     Dates: start: 20150304, end: 20150304
  16. LEVOFOLINATE [Suspect]
     Active Substance: LEVOLEUCOVORIN CALCIUM
     Dosage: 275.8 MG, 1X/DAY (199.4 MG/M2)
     Route: 041
     Dates: start: 20141113, end: 20141113
  17. LEVOFOLINATE [Suspect]
     Active Substance: LEVOLEUCOVORIN CALCIUM
     Dosage: 275.8 MG, 1X/DAY
     Route: 041
     Dates: start: 20150318, end: 20150318
  18. CAMPTO [Suspect]
     Active Substance: IRINOTECAN
     Dosage: 186.2 MG, 1X/DAY (134.6 MG/M2)
     Route: 041
     Dates: start: 20141204, end: 20141204
  19. CAMPTO [Suspect]
     Active Substance: IRINOTECAN
     Dosage: 200 MG, 1X/DAY (144.6 MG/M2)
     Route: 041
     Dates: start: 20150114, end: 20150114
  20. ELPLAT [Suspect]
     Active Substance: OXALIPLATIN
     Dosage: 117 MG, 1X/DAY (84.6 MG/M2)
     Route: 041
     Dates: start: 20141113, end: 20141113
  21. LEVOFOLINATE [Suspect]
     Active Substance: LEVOLEUCOVORIN CALCIUM
     Dosage: 275.8 MG, 1X/DAY
     Route: 041
     Dates: start: 20150114, end: 20150114
  22. ELPLAT [Suspect]
     Active Substance: OXALIPLATIN
     Dosage: 117.2 MG, 1X/DAY (84.7 MG/M2)
     Route: 041
     Dates: start: 20150128, end: 20150128
  23. CAMPTO [Suspect]
     Active Substance: IRINOTECAN
     Dosage: 186.2 MG, 1X/DAY (134.6 MG/M2)
     Route: 041
     Dates: start: 20141113, end: 20141113
  24. CAMPTO [Suspect]
     Active Substance: IRINOTECAN
     Dosage: 200 MG, 1X/DAY (144.6 MG/M2)
     Route: 041
     Dates: start: 20150401, end: 20150401
  25. CAMPTO [Suspect]
     Active Substance: IRINOTECAN
     Dosage: 200 MG, 1X/DAY (144.6 MG/M2)
     Route: 041
     Dates: start: 20150415, end: 20150415
  26. ELPLAT [Suspect]
     Active Substance: OXALIPLATIN
     Dosage: 117.2 MG, 1X/DAY (84.7 MG/M2)
     Route: 041
     Dates: start: 20150218, end: 20150218
  27. LEVOFOLINATE [Suspect]
     Active Substance: LEVOLEUCOVORIN CALCIUM
     Indication: PANCREATIC CARCINOMA
     Dosage: 275 MG, 1X/DAY (198.8 MG/M2)
     Route: 041
     Dates: start: 20141029, end: 20141029
  28. 5-FU [Concomitant]
     Active Substance: FLUOROURACIL
     Dosage: 3309.6 MG/BODY/D1-2, UNK (2393.1MG/M2/D1-2)
     Route: 041
     Dates: start: 20141113, end: 20141113
  29. CAMPTO [Suspect]
     Active Substance: IRINOTECAN
     Indication: PANCREATIC CARCINOMA
     Dosage: 160 MG, 1X/DAY (115.7 MG/M2)
     Route: 041
     Dates: start: 20141029, end: 20141029
  30. ELPLAT [Suspect]
     Active Substance: OXALIPLATIN
     Dosage: 117.2 MG, 1X/DAY (84.7 MG/M2)
     Route: 041
     Dates: start: 20150114, end: 20150114
  31. LEVOFOLINATE [Suspect]
     Active Substance: LEVOLEUCOVORIN CALCIUM
     Dosage: 275.8 MG, 1X/DAY
     Route: 041
     Dates: start: 20141204, end: 20141204
  32. LEVOFOLINATE [Suspect]
     Active Substance: LEVOLEUCOVORIN CALCIUM
     Dosage: 275.8 MG, 1X/DAY
     Route: 041
     Dates: start: 20150128, end: 20150128
  33. LEVOFOLINATE [Suspect]
     Active Substance: LEVOLEUCOVORIN CALCIUM
     Dosage: 275.8 MG, 1X/DAY
     Route: 041
     Dates: start: 20150218, end: 20150218

REACTIONS (8)
  - Diarrhoea [Unknown]
  - Bile duct stenosis [Unknown]
  - Peripheral sensory neuropathy [Unknown]
  - Decreased appetite [Unknown]
  - Pyrexia [Unknown]
  - Neutrophil count decreased [Unknown]
  - Fatigue [Unknown]
  - Stomatitis [Unknown]

NARRATIVE: CASE EVENT DATE: 20141113
